FAERS Safety Report 6976423-3 (Version None)
Quarter: 2010Q3

REPORT INFORMATION
  Report Type: 
  Country: None (occurrence: None)
  Receive Date: 20100910
  Receipt Date: 20100830
  Transmission Date: 20110219
  Serious: Yes (Hospitalization, Other)
  Sender: FDA-Public Use
  Company Number: US-PFIZER INC-2008099121

PATIENT
  Sex: Female
  Weight: 47 kg

DRUGS (34)
  1. CHANTIX [Suspect]
     Indication: SMOKING CESSATION THERAPY
     Dosage: ONE STARTER PACK AND THREE CONTINUING MONTH PACKS
     Route: 048
     Dates: start: 20071101, end: 20080201
  2. CHANTIX [Suspect]
     Indication: NICOTINE DEPENDENCE
  3. XANAX [Concomitant]
     Indication: GENERALISED ANXIETY DISORDER
     Dosage: UNK
     Dates: start: 20020101
  4. SUCRALFATE [Concomitant]
     Indication: ULCER
     Dosage: UNK
     Dates: start: 20030101
  5. DETROL LA [Concomitant]
  6. LAMICTAL [Concomitant]
  7. ESTRADIOL [Concomitant]
  8. ADVAIR DISKUS 100/50 [Concomitant]
  9. COMBIVENT [Concomitant]
     Indication: CHRONIC OBSTRUCTIVE PULMONARY DISEASE
     Dosage: UNK
     Route: 045
     Dates: start: 20050101
  10. SOMA [Concomitant]
     Indication: ANALGESIC THERAPY
     Dosage: UNK
     Dates: start: 20040101
  11. ALBUTEROL [Concomitant]
     Indication: CHRONIC OBSTRUCTIVE PULMONARY DISEASE
     Dosage: UNK
     Route: 045
     Dates: start: 20070101
  12. LYRICA [Concomitant]
  13. PERCOCET [Concomitant]
     Indication: ANALGESIC THERAPY
     Dosage: UNK
     Dates: start: 20020101
  14. ADDERALL 10 [Concomitant]
     Indication: ATTENTION DEFICIT/HYPERACTIVITY DISORDER
     Dosage: UNK
     Dates: start: 20040101
  15. HYDROXYZINE [Concomitant]
  16. OMEPRAZOLE [Concomitant]
  17. ZITHROMAX [Concomitant]
     Indication: ANTIBIOTIC THERAPY
     Dosage: UNK
     Dates: start: 20020101, end: 20090101
  18. AMBIEN [Concomitant]
     Indication: INSOMNIA
     Dosage: UNK
     Dates: start: 20020101, end: 20100101
  19. SEROQUEL [Concomitant]
     Indication: BIPOLAR DISORDER
     Dosage: UNK
     Dates: start: 20020101
  20. EFFEXOR XR [Concomitant]
     Indication: MAJOR DEPRESSION
     Dosage: UNK
     Dates: start: 20020101
  21. DIFLUCAN [Concomitant]
     Indication: INFECTION
     Dosage: UNK
     Dates: start: 20020101, end: 20090101
  22. OXYCODONE HCL AND ACETAMINOPHEN [Concomitant]
     Indication: ANALGESIC THERAPY
     Dosage: UNK
     Dates: start: 20020101, end: 20090101
  23. DEPO-ESTRADIOL [Concomitant]
     Indication: MENOPAUSE
     Dosage: UNK
     Dates: start: 20020101
  24. PREVACID [Concomitant]
     Indication: GASTROOESOPHAGEAL REFLUX DISEASE
     Dosage: UNK
     Dates: start: 20030101
  25. LEXAPRO [Concomitant]
     Indication: DEPRESSION
     Dosage: UNK
     Dates: start: 20030101, end: 20090101
  26. LEXAPRO [Concomitant]
  27. RESTORIL [Concomitant]
     Indication: ULCER
     Dosage: UNK
     Dates: start: 20030101, end: 20090101
  28. AVELOX [Concomitant]
     Indication: ANTIBIOTIC THERAPY
     Dosage: UNK
     Dates: start: 20060101, end: 20090101
  29. ABILIFY [Concomitant]
     Indication: DEPRESSION
     Dosage: UNK
     Dates: start: 20060101, end: 20100101
  30. ABILIFY [Concomitant]
     Indication: BIPOLAR DISORDER
  31. ELAVIL [Concomitant]
     Indication: DEPRESSION
     Dosage: UNK
     Dates: start: 20070101, end: 20090101
  32. ELAVIL [Concomitant]
  33. LUNESTA [Concomitant]
     Indication: INSOMNIA
     Dosage: UNK
     Dates: start: 20070101, end: 20090101
  34. ADVAIR DISKUS 100/50 [Concomitant]
     Indication: CHRONIC OBSTRUCTIVE PULMONARY DISEASE
     Dosage: UNK
     Dates: start: 20070101

REACTIONS (8)
  - ANTISOCIAL BEHAVIOUR [None]
  - DEPRESSION [None]
  - FAECAL INCONTINENCE [None]
  - HALLUCINATION, VISUAL [None]
  - INJURY [None]
  - LOSS OF CONSCIOUSNESS [None]
  - MENTAL DISORDER [None]
  - PSYCHOTIC DISORDER [None]
